FAERS Safety Report 13803341 (Version 2)
Quarter: 2020Q4

REPORT INFORMATION
  Report Type: Other
  Country: GB (occurrence: GB)
  Receive Date: 20170728
  Receipt Date: 20201027
  Transmission Date: 20210113
  Serious: Yes (Hospitalization, Other)
  Sender: FDA-Public Use
  Company Number: GB-ROCHE-1964699

PATIENT
  Sex: Female

DRUGS (1)
  1. ROACTEMRA [Suspect]
     Active Substance: TOCILIZUMAB
     Indication: RHEUMATOID ARTHRITIS
     Route: 058
     Dates: start: 20160713

REACTIONS (7)
  - Haemoptysis [Unknown]
  - Pulmonary oedema [Unknown]
  - Emphysema [Unknown]
  - Gait inability [Unknown]
  - Pain [Unknown]
  - Pneumonia [Unknown]
  - Rheumatoid arthritis [Unknown]
